FAERS Safety Report 6262411-1 (Version None)
Quarter: 2009Q3

REPORT INFORMATION
  Report Type: 
  Country: None (occurrence: None)
  Receive Date: 20090709
  Receipt Date: 20090702
  Transmission Date: 20100115
  Serious: Yes (Hospitalization)
  Sender: FDA-Public Use
  Company Number: DE-ROCHE-616894

PATIENT
  Sex: Male
  Weight: 80.5 kg

DRUGS (16)
  1. MYCOPHENOLATE MOFETIL [Suspect]
     Route: 048
     Dates: start: 20081028
  2. MYCOPHENOLATE MOFETIL [Suspect]
     Dosage: TDD: 2X500 MG
     Route: 048
     Dates: start: 20090212
  3. ADVAGRAF [Suspect]
     Dosage: FREQUENCY REPORTED AS 1.
     Route: 048
     Dates: start: 20081028
  4. PREDNISOLONE [Suspect]
     Dosage: FREQUENCY REPORTED AS 1.
     Route: 048
     Dates: start: 20081028
  5. SIMULECT [Suspect]
     Route: 042
  6. AMLODIPINE [Concomitant]
     Dates: start: 20081114
  7. AMPHOTERICIN B [Concomitant]
     Dosage: AMPHOMORONAL PIPETS. FREQ: 4.
     Dates: start: 20081114
  8. CALCIUM [Concomitant]
     Dosage: CALCIUM BRAUSSE.
     Dates: start: 20081114
  9. VIGANTOLETTEN [Concomitant]
     Dates: start: 20081114
  10. TAMSULOSIN HCL [Concomitant]
     Dates: start: 20081114
  11. FLUVASTATIN [Concomitant]
     Dates: start: 20081114
  12. EUTHYROX [Concomitant]
     Dates: start: 20081114
  13. METOPROLOL [Concomitant]
     Dates: start: 20081114
  14. RAMIPRIL [Concomitant]
     Dates: start: 20081114
  15. PANTOPRAZOL [Concomitant]
     Dates: start: 20081114
  16. ARANESP [Concomitant]
     Dates: start: 20081121

REACTIONS (1)
  - TRANSPLANT REJECTION [None]
